FAERS Safety Report 6807396-1 (Version None)
Quarter: 2010Q2

REPORT INFORMATION
  Report Type: 
  Country: None (occurrence: None)
  Receive Date: 20100629
  Receipt Date: 20090331
  Transmission Date: 20101027
  Serious: No
  Sender: FDA-Public Use
  Company Number: US-PFIZER INC-2008068282

PATIENT
  Sex: Male
  Weight: 102 kg

DRUGS (5)
  1. VIAGRA [Suspect]
     Indication: ERECTILE DYSFUNCTION
     Dates: start: 20080401, end: 20080401
  2. LIPITOR [Concomitant]
  3. ATENOLOL [Concomitant]
  4. ZYRTEC [Concomitant]
  5. COZAAR [Concomitant]

REACTIONS (4)
  - MIGRAINE WITH AURA [None]
  - PHOTOPSIA [None]
  - VISION BLURRED [None]
  - VISUAL IMPAIRMENT [None]
